FAERS Safety Report 9509551 (Version 1)
Quarter: 2013Q3

REPORT INFORMATION
  Report Type: Spontaneous
  Country: US (occurrence: US)
  Receive Date: 20130909
  Receipt Date: 20130909
  Transmission Date: 20140515
  Serious: Yes (Other)
  Sender: FDA-Public Use
  Company Number: US-BRISTOL-MYERS SQUIBB COMPANY-17242512

PATIENT
  Age: 13 Year
  Sex: Female

DRUGS (1)
  1. ABILIFY TABS 10 MG [Suspect]

REACTIONS (2)
  - Suicide attempt [Unknown]
  - Intentional overdose [Unknown]
